FAERS Safety Report 5192741-6 (Version None)
Quarter: 2006Q4

REPORT INFORMATION
  Report Type: 
  Country: None (occurrence: None)
  Receive Date: 20061228
  Receipt Date: 20061225
  Transmission Date: 20070319
  Serious: Yes (Death)
  Sender: FDA-Public Use
  Company Number: PHBS2006JP19888

PATIENT
  Age: 68 Year
  Sex: Female

DRUGS (3)
  1. DIOVAN [Suspect]
     Dosage: 40 MG/DAY
     Route: 048
     Dates: start: 20040101, end: 20040201
  2. VOLTAREN [Suspect]
     Dosage: 25 MG/DAY
     Route: 054
     Dates: start: 20040101, end: 20040201
  3. VOLTAREN [Suspect]
     Route: 048
     Dates: start: 20031201, end: 20040201

REACTIONS (1)
  - INTERSTITIAL LUNG DISEASE [None]
